FAERS Safety Report 18696854 (Version 6)
Quarter: 2021Q2

REPORT INFORMATION
  Report Type: Report from Study
  Country: KR (occurrence: KR)
  Receive Date: 20210104
  Receipt Date: 20210416
  Transmission Date: 20210717
  Serious: Yes (Death, Life-Threatening, Hospitalization)
  Sender: FDA-Public Use
  Company Number: KR-BRISTOL-MYERS SQUIBB COMPANY-BMS-2020-102000

PATIENT
  Age: 77 Year
  Sex: Male
  Weight: 68 kg

DRUGS (17)
  1. FURTMAN [Concomitant]
     Indication: PROPHYLAXIS
     Dosage: 1 DOSAGE FORM, QD
     Route: 042
     Dates: start: 20201128, end: 20201128
  2. INCRUSE ELLIPTA [Concomitant]
     Active Substance: UMECLIDINIUM BROMIDE
     Indication: PROPHYLAXIS
     Dosage: 1 DOSAGE FORM, PRN
     Route: 055
     Dates: start: 202009, end: 20201128
  3. REBAMIPIDE [Concomitant]
     Active Substance: REBAMIPIDE
     Indication: PROPHYLAXIS
     Dosage: 100 MILLIGRAM, TID
     Route: 048
     Dates: start: 20200929, end: 20201128
  4. NEURONTIN [Concomitant]
     Active Substance: GABAPENTIN
     Indication: PRODUCT USED FOR UNKNOWN INDICATION
     Dosage: 100 MILLIGRAM, TID
     Route: 048
     Dates: start: 20200915, end: 20201125
  5. CARBOPLATIN. [Suspect]
     Active Substance: CARBOPLATIN
     Indication: NON-SMALL CELL LUNG CANCER
     Dosage: 398 MILLIGRAM
     Route: 065
     Dates: start: 20200827, end: 20201202
  6. EBASTINE [Concomitant]
     Active Substance: EBASTINE
     Indication: PRODUCT USED FOR UNKNOWN INDICATION
     Dosage: 10 MILLIGRAM, QD
     Route: 048
     Dates: start: 20201022, end: 20201128
  7. BEPOTASTINE SALICYLATE [Concomitant]
     Indication: PRODUCT USED FOR UNKNOWN INDICATION
     Dosage: 9.64 MILLIGRAM, BID
     Route: 048
     Dates: start: 20201022, end: 20201128
  8. KABITWIN PERI [Concomitant]
     Indication: PROPHYLAXIS
     Dosage: 1 DOSAGE FORM, QD
     Route: 042
     Dates: start: 20201128, end: 20201128
  9. GELMA [Concomitant]
     Indication: PROPHYLAXIS
     Dosage: 10 GRAM, TID
     Route: 048
     Dates: start: 20201012, end: 20201128
  10. LEVOCETIRIZINE HCL [Concomitant]
     Indication: PROPHYLAXIS
     Dosage: 5 MILLIGRAM, QD
     Route: 048
     Dates: start: 20200929, end: 20201125
  11. PACLITAXEL. [Suspect]
     Active Substance: PACLITAXEL
     Indication: NON-SMALL CELL LUNG CANCER
     Dosage: 308 MILLIGRAM
     Route: 065
     Dates: start: 20200827, end: 20201202
  12. PREDNISOLONE ACETATE. [Concomitant]
     Active Substance: PREDNISOLONE ACETATE
     Indication: PROPHYLAXIS
     Dosage: 5 MILLIGRAM
     Route: 048
     Dates: start: 20201022, end: 20201114
  13. AMLODIPINE [Concomitant]
     Active Substance: AMLODIPINE BESYLATE
     Indication: PRODUCT USED FOR UNKNOWN INDICATION
     Dosage: 5 MILLIGRAM, QD
     Route: 048
     Dates: start: 1970, end: 20201128
  14. MYPOL [CODEINE PHOSPHATE;IBUPROFEN;PARACETAMOL] [Concomitant]
     Indication: PRODUCT USED FOR UNKNOWN INDICATION
     Dosage: 1 DOSAGE FORM, TID
     Route: 048
     Dates: start: 20200915, end: 20201128
  15. LACTICARE HC [DL? LACTIC ACID;HYDROCORTISONE;SODIUM PIDOLATE] [Concomitant]
     Indication: PROPHYLAXIS
     Dosage: 118 GRAM, PRN
     Route: 061
     Dates: start: 20200929, end: 20201128
  16. NIVOLUMAB [Suspect]
     Active Substance: NIVOLUMAB
     Indication: NON-SMALL CELL LUNG CANCER
     Dosage: 360 MILLIGRAM
     Route: 042
     Dates: start: 20200827, end: 20201202
  17. ANORO ELLIPTA [Concomitant]
     Active Substance: UMECLIDINIUM BROMIDE\VILANTEROL TRIFENATATE
     Indication: PROPHYLAXIS
     Dosage: 1 DOSAGE FORM
     Route: 055
     Dates: start: 202007, end: 20201128

REACTIONS (1)
  - Pneumonitis [Fatal]

NARRATIVE: CASE EVENT DATE: 20201128
